FAERS Safety Report 14290300 (Version 3)
Quarter: 2018Q1

REPORT INFORMATION
  Report Type: Spontaneous
  Country: US (occurrence: US)
  Receive Date: 20171215
  Receipt Date: 20180104
  Transmission Date: 20180509
  Serious: Yes (Other)
  Sender: FDA-Public Use
  Company Number: US-ASTELLAS-2017US052814

PATIENT
  Age: 40 Year
  Sex: Male

DRUGS (9)
  1. ALENDRONATE [Concomitant]
     Active Substance: ALENDRONATE SODIUM
     Indication: PRODUCT USED FOR UNKNOWN INDICATION
     Dosage: UNK UNK, UNKNOWN FREQ.
     Route: 065
  2. SIROLIMUS. [Concomitant]
     Active Substance: SIROLIMUS
     Indication: GRAFT VERSUS HOST DISEASE
     Dosage: UNK UNK, UNKNOWN FREQ.
     Route: 065
  3. ETANERCEPT [Concomitant]
     Active Substance: ETANERCEPT
     Indication: GRAFT VERSUS HOST DISEASE
     Dosage: UNK UNK, UNKNOWN FREQ.
     Route: 058
  4. TACROLIMUS. [Suspect]
     Active Substance: TACROLIMUS
     Indication: STEM CELL TRANSPLANT
     Dosage: UNK UNK, ONCE DAILY
     Route: 048
  5. TACROLIMUS. [Suspect]
     Active Substance: TACROLIMUS
     Indication: GRAFT VERSUS HOST DISEASE
     Dosage: UNK UNK, UNKNOWN FREQ.
     Route: 065
  6. TACROLIMUS. [Suspect]
     Active Substance: TACROLIMUS
     Indication: ACUTE GRAFT VERSUS HOST DISEASE IN LIVER
  7. ACICLOVIR [Concomitant]
     Active Substance: ACYCLOVIR
     Indication: PRODUCT USED FOR UNKNOWN INDICATION
     Dosage: UNK UNK, UNKNOWN FREQ.
     Route: 065
  8. METHYLPREDNISOLONE. [Concomitant]
     Active Substance: METHYLPREDNISOLONE
     Indication: GRAFT VERSUS HOST DISEASE
     Dosage: UNK UNK, UNKNOWN FREQ.
     Route: 065
  9. AMLODIPINE [Concomitant]
     Active Substance: AMLODIPINE BESYLATE
     Indication: PRODUCT USED FOR UNKNOWN INDICATION
     Dosage: UNK UNK, UNKNOWN FREQ.
     Route: 065

REACTIONS (9)
  - Acute kidney injury [Recovered/Resolved]
  - Chronic kidney disease [Recovering/Resolving]
  - Graft versus host disease in skin [Recovering/Resolving]
  - Graft versus host disease in liver [Unknown]
  - Nephropathy toxic [Recovering/Resolving]
  - Blood triglycerides increased [Unknown]
  - Glomerulonephritis minimal lesion [Recovering/Resolving]
  - Blood cholesterol increased [Unknown]
  - Off label use [Unknown]
